FAERS Safety Report 4976182-X (Version None)
Quarter: 2006Q2

REPORT INFORMATION
  Report Type: 
  Country: None (occurrence: None)
  Receive Date: 20060412
  Receipt Date: 20060331
  Transmission Date: 20061013
  Serious: Yes (Other)
  Sender: FDA-Public Use
  Company Number: 2006046813

PATIENT
  Age: 49 Year
  Sex: Female
  Weight: 57.4 kg

DRUGS (6)
  1. IDARUBICIN HCL [Suspect]
     Indication: ACUTE MYELOID LEUKAEMIA
     Dosage: 14 MG, 1 IN 1 D, INTRAVENOUS
     Route: 042
     Dates: start: 20060302
  2. CYTARABINE [Suspect]
     Indication: ACUTE MYELOID LEUKAEMIA
     Dosage: 4.65 GRAM, 2 IN 1 D, INTRAVENOUS
     Route: 042
     Dates: start: 20060302
  3. ETOPOSIDE [Suspect]
     Indication: ACUTE MYELOID LEUKAEMIA
     Dosage: 116 MG, 1 IN 1 D, INTRAVENOUS
     Route: 042
     Dates: start: 20060302
  4. AMPHOTERICIN B [Concomitant]
  5. MEROPENEM (MEROPENEM) [Concomitant]
  6. TEICOPLANIN (TEICOPLANIN) [Concomitant]

REACTIONS (2)
  - LIVER FUNCTION TEST ABNORMAL [None]
  - VENOOCCLUSIVE LIVER DISEASE [None]
